FAERS Safety Report 4803706-5 (Version None)
Quarter: 2005Q4

REPORT INFORMATION
  Report Type: 
  Country: None (occurrence: None)
  Receive Date: 20051013
  Receipt Date: 20050930
  Transmission Date: 20060501
  Serious: Yes (Other)
  Sender: FDA-Public Use
  Company Number: 2005082914

PATIENT
  Age: 77 Year
  Sex: Male

DRUGS (3)
  1. LIPITOR [Suspect]
     Indication: ILL-DEFINED DISORDER
     Dosage: ORAL
     Route: 048
     Dates: end: 20050101
  2. ZOCOR [Suspect]
     Indication: ILL-DEFINED DISORDER
     Dosage: ORAL
     Route: 048
  3. GLUCOPHAGE [Suspect]
     Indication: ILL-DEFINED DISORDER

REACTIONS (24)
  - ABASIA [None]
  - ARTERIAL INSUFFICIENCY [None]
  - ASTHENIA [None]
  - CENTRAL OBESITY [None]
  - DIABETES MELLITUS [None]
  - DIARRHOEA [None]
  - ESSENTIAL HYPERTENSION [None]
  - FEAR [None]
  - GENERAL PHYSICAL HEALTH DETERIORATION [None]
  - GLYCOSYLATED HAEMOGLOBIN INCREASED [None]
  - GROIN PAIN [None]
  - HAEMOPTYSIS [None]
  - HEART RATE IRREGULAR [None]
  - HYPERLIPIDAEMIA [None]
  - INTERMITTENT CLAUDICATION [None]
  - MICROALBUMINURIA [None]
  - MOBILITY DECREASED [None]
  - MUSCLE INJURY [None]
  - MUSCULOSKELETAL CHEST PAIN [None]
  - PARAESTHESIA [None]
  - POSTNASAL DRIP [None]
  - PRODUCTIVE COUGH [None]
  - SNORING [None]
  - TENDERNESS [None]
